FAERS Safety Report 10330619 (Version 1)
Quarter: 2014Q3

REPORT INFORMATION
  Report Type: Spontaneous
  Country: ES (occurrence: ES)
  Receive Date: 20140722
  Receipt Date: 20140722
  Transmission Date: 20150326
  Serious: Yes (Other)
  Sender: FDA-Public Use
  Company Number: ES-UCBSA-2014005502

PATIENT
  Age: 59 Year
  Sex: Male

DRUGS (12)
  1. NIFEDIPINO OROS [Concomitant]
  2. TRINISPRAY [Concomitant]
  3. ADIRO [Concomitant]
     Active Substance: ASPIRIN
  4. SITAGLIPTIN METFORMIN [Suspect]
     Active Substance: METFORMIN HYDROCHLORIDE\SITAGLIPTIN PHOSPHATE
     Indication: TYPE 2 DIABETES MELLITUS
  5. ATORVASTATIN [Concomitant]
     Active Substance: ATORVASTATIN
  6. LORAZEPAM. [Concomitant]
     Active Substance: LORAZEPAM
  7. ENALAPRIL + HIDROCLOROTIAZIDA [Concomitant]
  8. GLYCERYL TRINITRATE [Suspect]
     Active Substance: NITROGLYCERIN
     Route: 062
  9. OMPRAZOLE [Concomitant]
     Active Substance: OMEPRAZOLE
  10. ATENOLOL. [Concomitant]
     Active Substance: ATENOLOL
  11. OMACOR [Concomitant]
     Active Substance: OMEGA-3-ACID ETHYL ESTERS
  12. NOLOTIL [Concomitant]
     Active Substance: METAMIZOLE

REACTIONS (1)
  - Pancreatitis acute [Recovered/Resolved]

NARRATIVE: CASE EVENT DATE: 20120822
